FAERS Safety Report 16566955 (Version 4)
Quarter: 2019Q4

REPORT INFORMATION
  Report Type: Spontaneous
  Country: FR (occurrence: FR)
  Receive Date: 20190712
  Receipt Date: 20191227
  Transmission Date: 20200122
  Serious: Yes (Hospitalization)
  Sender: FDA-Public Use
  Company Number: FR-SA-2019SA186800

PATIENT
  Age: 73 Year
  Sex: Male

DRUGS (1)
  1. IMMUCYST [Suspect]
     Active Substance: BACILLUS CALMETTE-GUERIN SUBSTRAIN CONNAUGHT LIVE ANTIGEN
     Indication: BLADDER CANCER
     Dosage: 1 DF
     Route: 043
     Dates: start: 20190318, end: 20190318

REACTIONS (3)
  - Rash [Recovered/Resolved]
  - Pruritus [Recovered/Resolved]
  - Bacille Calmette-Guerin scar reactivation [Recovered/Resolved]

NARRATIVE: CASE EVENT DATE: 20190318
